FAERS Safety Report 5729211-X (Version None)
Quarter: 2008Q2

REPORT INFORMATION
  Report Type: 
  Country: None (occurrence: None)
  Receive Date: 20080506
  Receipt Date: 20080424
  Transmission Date: 20081010
  Serious: Yes (Other)
  Sender: FDA-Public Use
  Company Number: JP-ROCHE-536765

PATIENT
  Sex: Male
  Weight: 38 kg

DRUGS (3)
  1. TAMIFLU [Suspect]
     Indication: INFLUENZA
     Route: 048
     Dates: start: 20050219, end: 20050223
  2. 1 CONCOMITANT DRUG [Concomitant]
     Dosage: DRUG REPORTED: TROCHES (COMP.) FORM: LOZENGE. ROUTE: OROPHARINGEAL.
     Route: 050
     Dates: start: 20050219
  3. AZUNOL [Concomitant]
     Dosage: FORM: GARGLE. ROUTE: OROPHARINGEAL. NOTE: SINGLE USE.
     Route: 050
     Dates: start: 20050219

REACTIONS (1)
  - ABNORMAL BEHAVIOUR [None]
